FAERS Safety Report 21975547 (Version 1)
Quarter: 2023Q1

REPORT INFORMATION
  Report Type: Spontaneous
  Country: US (occurrence: None)
  Receive Date: 20230210
  Receipt Date: 20230210
  Transmission Date: 20230418
  Serious: Yes (Other)
  Sender: FDA-Public Use
  Company Number: US-ROCHE-3278718

PATIENT
  Sex: Male

DRUGS (1)
  1. HEMLIBRA [Suspect]
     Active Substance: EMICIZUMAB-KXWH
     Indication: Hypogammaglobulinaemia
     Route: 058
     Dates: start: 20221208

REACTIONS (2)
  - Intentional self-injury [Unknown]
  - Off label use [Unknown]

NARRATIVE: CASE EVENT DATE: 20230121
